FAERS Safety Report 8870402 (Version 1)
Quarter: 2012Q4

REPORT INFORMATION
  Report Type: 
  Country: US (occurrence: US)
  Receive Date: 20121023
  Receipt Date: 20121023
  Transmission Date: 20130627
  Serious: No
  Sender: FDA-Public Use
  Company Number: US-AMGEN-USASP2011067377

PATIENT
  Age: 58 Year
  Sex: Male

DRUGS (2)
  1. ENBREL [Suspect]
     Indication: RHEUMATOID ARTHRITIS
     Dosage: 50 mg, qwk
     Dates: start: 20110907, end: 20111203
  2. METHOTREXATE [Concomitant]
     Dates: start: 2009

REACTIONS (3)
  - Tinnitus [Unknown]
  - Anxiety [Unknown]
  - Rheumatoid arthritis [Not Recovered/Not Resolved]
